FAERS Safety Report 5067059-2 (Version None)
Quarter: 2006Q3

REPORT INFORMATION
  Report Type: 
  Country: None (occurrence: None)
  Receive Date: 20060801
  Receipt Date: 20060217
  Transmission Date: 20061208
  Serious: Yes (Death, Hospitalization, Other)
  Sender: FDA-Public Use
  Company Number: US-BAYER-200610931BWH

PATIENT
  Age: 55 Year
  Sex: Male

DRUGS (4)
  1. AVELOX [Suspect]
     Indication: OTITIS MEDIA
     Route: 048
     Dates: start: 20060111, end: 20060118
  2. STATIN (NOS) [Concomitant]
  3. ADVIL [Concomitant]
     Indication: MALAISE
     Dosage: AS USED: 200 MG  UNIT DOSE: 200 MG
  4. TOBRADEX [Concomitant]
     Indication: CONJUNCTIVITIS VIRAL

REACTIONS (21)
  - ACIDOSIS [None]
  - COAGULOPATHY [None]
  - CONFUSIONAL STATE [None]
  - CONJUNCTIVITIS INFECTIVE [None]
  - DERMATITIS EXFOLIATIVE [None]
  - GAIT DISTURBANCE [None]
  - HAEMODIALYSIS [None]
  - HEPATIC ENCEPHALOPATHY [None]
  - HEPATIC FAILURE [None]
  - HYPOTENSION [None]
  - LIVER FUNCTION TEST ABNORMAL [None]
  - MALAISE [None]
  - MUSCLE SPASMS [None]
  - MYOCARDIAL INFARCTION [None]
  - PETECHIAE [None]
  - PYREXIA [None]
  - RASH GENERALISED [None]
  - RENAL FAILURE ACUTE [None]
  - RESTLESS LEGS SYNDROME [None]
  - SYSTEMIC INFLAMMATORY RESPONSE SYNDROME [None]
  - THROMBOCYTOPENIA [None]
